FAERS Safety Report 5834411-4 (Version None)
Quarter: 2008Q3

REPORT INFORMATION
  Report Type: 
  Country: None (occurrence: None)
  Receive Date: 20080731
  Receipt Date: 20080717
  Transmission Date: 20090109
  Serious: Yes (Other)
  Sender: FDA-Public Use
  Company Number: OPIR20080020

PATIENT

DRUGS (3)
  1. OPANA [Suspect]
  2. GLUCOPHAGE [Suspect]
  3. MRI [Suspect]

REACTIONS (1)
  - RENAL FAILURE [None]
